FAERS Safety Report 7519645-5 (Version None)
Quarter: 2011Q2

REPORT INFORMATION
  Report Type: 
  Country: None (occurrence: None)
  Receive Date: 20110602
  Receipt Date: 20110526
  Transmission Date: 20111010
  Serious: Yes (Other)
  Sender: FDA-Public Use
  Company Number: B0637929A

PATIENT
  Sex: Female
  Weight: 63 kg

DRUGS (3)
  1. GLUCOSAMINE [Concomitant]
     Indication: ARTHRALGIA
     Dosage: 750MG TWICE PER DAY
     Route: 048
     Dates: start: 20080130
  2. LAPATINIB [Suspect]
     Indication: BREAST CANCER
     Dosage: 1500MG PER DAY
     Route: 048
     Dates: start: 20100202
  3. PACLITAXEL [Suspect]
     Indication: BREAST CANCER
     Dosage: 80MGM2 WEEKLY
     Route: 042
     Dates: start: 20100202

REACTIONS (1)
  - THROMBOSIS [None]
